FAERS Safety Report 4636152-8 (Version None)
Quarter: 2005Q2

REPORT INFORMATION
  Report Type: 
  Country: None (occurrence: None)
  Receive Date: 20050415
  Receipt Date: 20050406
  Transmission Date: 20051028
  Serious: Yes (Death)
  Sender: FDA-Public Use
  Company Number: US-BRISTOL-MYERS SQUIBB COMPANY-12925483

PATIENT
  Sex: Male

DRUGS (3)
  1. TAXOL [Suspect]
  2. PARAPLATIN [Suspect]
  3. PLATINOL-AQ [Suspect]

REACTIONS (1)
  - DEATH [None]
